FAERS Safety Report 24671832 (Version 1)
Quarter: 2024Q4

REPORT INFORMATION
  Report Type: Spontaneous
  Country: GB (occurrence: GB)
  Receive Date: 20241127
  Receipt Date: 20241127
  Transmission Date: 20250115
  Serious: Yes (Life-Threatening, Other)
  Sender: B BRAUN
  Company Number: GB-B.Braun Medical Inc.-2166093

PATIENT
  Sex: Male

DRUGS (2)
  1. SODIUM CHLORIDE [Suspect]
     Active Substance: SODIUM CHLORIDE
     Indication: Adverse drug reaction
     Dates: start: 20241115, end: 20241115
  2. FERRIC DERISOMALTOSE [Suspect]
     Active Substance: FERRIC DERISOMALTOSE

REACTIONS (4)
  - Loss of consciousness [Recovered/Resolved]
  - Circulatory collapse [Recovered/Resolved]
  - Pulse absent [Recovered/Resolved]
  - Seizure [Recovered/Resolved]
